FAERS Safety Report 7876394-1 (Version None)
Quarter: 2011Q4

REPORT INFORMATION
  Report Type: 
  Country: None (occurrence: None)
  Receive Date: 20111031
  Receipt Date: 20111024
  Transmission Date: 20120403
  Serious: Yes (Other)
  Sender: FDA-Public Use
  Company Number: US-AMGEN-USASP2011054913

PATIENT
  Age: 59 Year
  Sex: Female

DRUGS (2)
  1. ENBREL [Suspect]
     Indication: PSORIATIC ARTHROPATHY
     Dosage: 50 MG, QWK
     Dates: start: 20050401
  2. ENBREL [Suspect]
     Indication: PSORIASIS

REACTIONS (8)
  - STRESS [None]
  - PSORIATIC ARTHROPATHY [None]
  - PSORIASIS [None]
  - HEADACHE [None]
  - MUSCULAR WEAKNESS [None]
  - FATIGUE [None]
  - INJECTION SITE PAIN [None]
  - ABDOMINAL PAIN UPPER [None]
